FAERS Safety Report 11707837 (Version 4)
Quarter: 2019Q1

REPORT INFORMATION
  Report Type: Report from Study
  Country: GB (occurrence: GB)
  Receive Date: 20151106
  Receipt Date: 20190208
  Transmission Date: 20190417
  Serious: Yes (Death, Hospitalization, Other)
  Sender: FDA-Public Use
  Company Number: GB-009507513-1511GBR003261

PATIENT
  Age: 74 Year
  Sex: Male

DRUGS (10)
  1. LEDIPASVIR (+) SOFOSBUVIR [Interacting]
     Active Substance: LEDIPASVIR\SOFOSBUVIR
     Indication: HEPATITIS C
     Dosage: 90 MG, QD
     Dates: start: 20140715, end: 20140802
  2. PEGINTERFERON ALFA-2A. [Concomitant]
     Active Substance: PEGINTERFERON ALFA-2A
  3. PROPRANOLOL [Concomitant]
     Active Substance: PROPRANOLOL HYDROCHLORIDE
     Dosage: UNK
  4. ATRIPLA [Interacting]
     Active Substance: EFAVIRENZ\EMTRICITABINE\TENOFOVIR DISOPROXIL FUMARATE
     Indication: HEPATITIS C
     Dosage: 1 DOSAGE FORM, QD
     Route: 048
     Dates: start: 2010, end: 20140803
  5. LEDIPASVIR (+) SOFOSBUVIR [Interacting]
     Active Substance: LEDIPASVIR\SOFOSBUVIR
     Indication: ANTIVIRAL TREATMENT
  6. RIBAVIRIN. [Interacting]
     Active Substance: RIBAVIRIN
     Dosage: UNK
     Route: 065
     Dates: start: 2009
  7. SPIRONOLACTONE. [Concomitant]
     Active Substance: SPIRONOLACTONE
     Dosage: UNK
  8. ATRIPLA [Interacting]
     Active Substance: EFAVIRENZ\EMTRICITABINE\TENOFOVIR DISOPROXIL FUMARATE
     Indication: ANTIRETROVIRAL THERAPY
  9. RIBAVIRIN. [Suspect]
     Active Substance: RIBAVIRIN
     Indication: HEPATITIS C
     Dosage: 600 MG, BID
     Route: 048
     Dates: start: 20140715, end: 20140729
  10. RIBAVIRIN. [Interacting]
     Active Substance: RIBAVIRIN
     Dosage: UNK

REACTIONS (8)
  - Multiple organ dysfunction syndrome [Fatal]
  - Jaundice [Fatal]
  - Hepatic failure [Fatal]
  - Drug interaction [Fatal]
  - Vomiting [Fatal]
  - Drug-induced liver injury [Fatal]
  - Dehydration [Fatal]
  - Abdominal pain [Fatal]

NARRATIVE: CASE EVENT DATE: 20140801
